FAERS Safety Report 10840663 (Version 1)
Quarter: 2015Q1

REPORT INFORMATION
  Report Type: Report from Study
  Country: US (occurrence: US)
  Receive Date: 20150220
  Receipt Date: 20150220
  Transmission Date: 20150721
  Serious: Yes (Hospitalization)
  Sender: FDA-Public Use
  Company Number: US-ABBVIE-14P-163-1233138-00

PATIENT
  Age: 21 Year
  Sex: Female
  Weight: 76.27 kg

DRUGS (5)
  1. HUMIRA [Suspect]
     Active Substance: ADALIMUMAB
     Indication: CROHN^S DISEASE
     Dates: start: 20140327, end: 20140327
  2. HUMIRA [Suspect]
     Active Substance: ADALIMUMAB
     Dates: start: 20140410, end: 20140410
  3. PENTASA [Concomitant]
     Active Substance: MESALAMINE
     Indication: GASTRIC DISORDER
     Dosage: DAILY
  4. ENTOCORT [Concomitant]
     Active Substance: BUDESONIDE
     Indication: GASTRIC DISORDER
     Dosage: DAILY
  5. HUMIRA [Suspect]
     Active Substance: ADALIMUMAB
     Dates: start: 20140424

REACTIONS (5)
  - Crohn^s disease [Recovered/Resolved]
  - Urinary tract infection [Recovered/Resolved]
  - Vomiting [Recovered/Resolved]
  - Nausea [Recovered/Resolved]
  - Abdominal pain [Recovered/Resolved]

NARRATIVE: CASE EVENT DATE: 201404
